FAERS Safety Report 4762812-4 (Version None)
Quarter: 2005Q3

REPORT INFORMATION
  Report Type: 
  Country: None (occurrence: None)
  Receive Date: 20050907
  Receipt Date: 20050905
  Transmission Date: 20060218
  Serious: Yes (Death)
  Sender: FDA-Public Use
  Company Number: PHBS2005ES12969

PATIENT
  Age: 4 Year
  Sex: Male

DRUGS (2)
  1. CYCLOSPORINE [Suspect]
     Indication: NEPHROTIC SYNDROME
     Route: 065
  2. CORTICOSTEROIDS [Suspect]
     Indication: NEPHROTIC SYNDROME
     Route: 065

REACTIONS (1)
  - PNEUMONIA HERPES VIRAL [None]
